FAERS Safety Report 14684005 (Version 2)
Quarter: 2018Q2

REPORT INFORMATION
  Report Type: Spontaneous
  Country: US (occurrence: US)
  Receive Date: 20180327
  Receipt Date: 20180620
  Transmission Date: 20180711
  Serious: No
  Sender: FDA-Public Use
  Company Number: US-NOVAST LABORATORIES, LTD-US-2018NOV000122

PATIENT

DRUGS (3)
  1. NIFEDIPINE. [Suspect]
     Active Substance: NIFEDIPINE
     Indication: HYPERTENSION
     Dosage: 60 MG, BID
     Route: 048
  2. NIFEDIPINE. [Suspect]
     Active Substance: NIFEDIPINE
     Dosage: 60 MG, QD
  3. METFORMIN [Concomitant]
     Active Substance: METFORMIN HYDROCHLORIDE
     Indication: DIABETES MELLITUS
     Dosage: UNK

REACTIONS (6)
  - Product physical issue [Unknown]
  - Medication residue present [Unknown]
  - Drug ineffective [Unknown]
  - Constipation [Unknown]
  - Product quality issue [Unknown]
  - Bowel movement irregularity [Unknown]
